FAERS Safety Report 5745051-X (Version None)
Quarter: 2008Q2

REPORT INFORMATION
  Report Type: 
  Country: None (occurrence: None)
  Receive Date: 20080521
  Receipt Date: 20080513
  Transmission Date: 20081010
  Serious: Yes (Hospitalization)
  Sender: FDA-Public Use
  Company Number: IT-ABBOTT-08P-083-0447084-00

PATIENT
  Sex: Male

DRUGS (2)
  1. CLARITHROMYCIN [Suspect]
     Indication: INFECTIOUS MONONUCLEOSIS
     Dosage: 1000MG DAILY
     Dates: start: 20080405
  2. CLARITHROMYCIN [Suspect]
     Indication: PYREXIA

REACTIONS (3)
  - CONFUSIONAL STATE [None]
  - ERYTHEMA [None]
  - EYELID OEDEMA [None]
